FAERS Safety Report 8470326-3 (Version None)
Quarter: 2012Q2

REPORT INFORMATION
  Report Type: 
  Country: None (occurrence: None)
  Receive Date: 20120627
  Receipt Date: 20120622
  Transmission Date: 20120825
  Serious: No
  Sender: FDA-Public Use
  Company Number: US-PFIZER INC-2012150355

PATIENT
  Sex: Female
  Weight: 49.887 kg

DRUGS (2)
  1. CHILDREN'S ADVIL [Suspect]
     Indication: COUGH
     Dosage: UNK, 2X/DAY
     Dates: start: 20120619
  2. CHILDREN'S ADVIL [Suspect]
     Indication: NASOPHARYNGITIS

REACTIONS (3)
  - ANXIETY [None]
  - ACTIVITIES OF DAILY LIVING IMPAIRED [None]
  - CHILLS [None]
